FAERS Safety Report 8557319-2 (Version None)
Quarter: 2012Q3

REPORT INFORMATION
  Report Type: 
  Country: None (occurrence: None)
  Receive Date: 20120720
  Receipt Date: 20120710
  Transmission Date: 20120928
  Serious: Yes (Life-Threatening, Other)
  Sender: FDA-Public Use
  Company Number: 2012P1048746

PATIENT
  Age: 62 Year
  Sex: Female
  Weight: 62.1428 kg

DRUGS (1)
  1. TWINJECT 0.3 [Suspect]
     Indication: ALLERGY TO ARTHROPOD STING
     Dosage: X1
     Dates: start: 20120709, end: 20120709

REACTIONS (16)
  - VOMITING [None]
  - LOSS OF CONSCIOUSNESS [None]
  - CHEST PAIN [None]
  - POST-TRAUMATIC STRESS DISORDER [None]
  - SHOCK [None]
  - DYSSTASIA [None]
  - THINKING ABNORMAL [None]
  - MONOPLEGIA [None]
  - INCORRECT DOSE ADMINISTERED BY DEVICE [None]
  - PALPITATIONS [None]
  - MUSCLE SPASMS [None]
  - FEELING ABNORMAL [None]
  - BRAIN INJURY [None]
  - ECONOMIC PROBLEM [None]
  - REFUSAL OF TREATMENT BY PATIENT [None]
  - CARDIAC DISORDER [None]
